FAERS Safety Report 6551517-5 (Version None)
Quarter: 2010Q1

REPORT INFORMATION
  Report Type: 
  Country: None (occurrence: None)
  Receive Date: 20100122
  Receipt Date: 20090626
  Transmission Date: 20100710
  Serious: Yes (Hospitalization)
  Sender: FDA-Public Use
  Company Number: WAES 0906USA05328

PATIENT
  Age: 65 Year
  Sex: Female

DRUGS (13)
  1. INVANZ [Suspect]
     Indication: INFECTION
     Dosage: 500 MG/DAILY/IV
     Route: 042
     Dates: start: 20090605
  2. NEPHROCAPS [Concomitant]
  3. NORVASC [Concomitant]
  4. RENAGEL [Concomitant]
  5. ASPIRIN [Concomitant]
  6. CALCITRIOL [Concomitant]
  7. CLONIDINE [Concomitant]
  8. FLUCONAZOLE [Concomitant]
  9. FOLIC ACID [Concomitant]
  10. INSULIN [Concomitant]
  11. LISINOPRIL [Concomitant]
  12. METOPROLOL TARTRATE [Concomitant]
  13. SIMVASTATIN [Concomitant]

REACTIONS (1)
  - HALLUCINATION [None]
